FAERS Safety Report 4427246-0 (Version None)
Quarter: 2004Q3

REPORT INFORMATION
  Report Type: 
  Country: None (occurrence: None)
  Receive Date: 20040813
  Receipt Date: 20040813
  Transmission Date: 20050211
  Serious: No
  Sender: FDA-Public Use
  Company Number: None

PATIENT
  Sex: Male

DRUGS (2)
  1. COUMADIN [Suspect]
     Indication: ANTICOAGULANT THERAPY
     Dosage: 1.5MG  Q48H ALTER  ORAL
     Route: 048
  2. COUMADIN [Suspect]
     Dosage: 1MG  Q48H  ORAL
     Route: 048

REACTIONS (2)
  - INTERNATIONAL NORMALISED RATIO INCREASED [None]
  - PROTHROMBIN TIME PROLONGED [None]
